FAERS Safety Report 10504322 (Version 1)
Quarter: 2014Q4

REPORT INFORMATION
  Report Type: Spontaneous
  Country: US (occurrence: US)
  Receive Date: 20141008
  Receipt Date: 20141008
  Transmission Date: 20150528
  Serious: Yes (Other)
  Sender: FDA-Public Use
  Company Number: US-ASTRAZENECA-2014SE74224

PATIENT
  Age: 55 Year
  Sex: Female

DRUGS (1)
  1. SEROQUEL [Suspect]
     Active Substance: QUETIAPINE FUMARATE
     Indication: INSOMNIA
     Route: 048
     Dates: start: 2009

REACTIONS (11)
  - Fall [Unknown]
  - Haemorrhage [Unknown]
  - Off label use [Unknown]
  - Memory impairment [Unknown]
  - Bite [Unknown]
  - Bedridden [Unknown]
  - Injury [Unknown]
  - Muscle twitching [Unknown]
  - Loss of consciousness [Unknown]
  - Joint dislocation [Unknown]
  - Intentional product use issue [Unknown]

NARRATIVE: CASE EVENT DATE: 2009
